FAERS Safety Report 5390642-1 (Version None)
Quarter: 2007Q3

REPORT INFORMATION
  Report Type: 
  Country: None (occurrence: None)
  Receive Date: 20070718
  Receipt Date: 20070712
  Transmission Date: 20080115
  Serious: Yes (Congenital Anomaly, Other)
  Sender: FDA-Public Use
  Company Number: GB-ROXANE LABORATORIES, INC-2007-BP-17258RO

PATIENT

DRUGS (3)
  1. METHADONE HCL [Suspect]
     Route: 064
  2. CHLORPROMAZINE [Suspect]
     Route: 064
  3. HEROIN [Suspect]
     Route: 064

REACTIONS (6)
  - CONGENITAL NYSTAGMUS [None]
  - DEVELOPMENTAL DELAY [None]
  - DRUG WITHDRAWAL SYNDROME NEONATAL [None]
  - LEARNING DISORDER [None]
  - MICROCEPHALY [None]
  - POSTURE ABNORMAL [None]
